FAERS Safety Report 8575664-1 (Version None)
Quarter: 2012Q3

REPORT INFORMATION
  Report Type: 
  Country: None (occurrence: None)
  Receive Date: 20120807
  Receipt Date: 20120802
  Transmission Date: 20120928
  Serious: Yes (Other)
  Sender: FDA-Public Use
  Company Number: PHHY2012BR067449

PATIENT
  Sex: Female

DRUGS (4)
  1. DEPAKENE [Suspect]
     Dosage: 500 MG, UNK
  2. VALPATINO [Suspect]
  3. CARBAMAZEPINE [Suspect]
     Dosage: 200 MG, UNK
  4. TEGRETOL [Suspect]
     Dosage: 400 MG, TID

REACTIONS (4)
  - ECONOMIC PROBLEM [None]
  - PRODUCT SUBSTITUTION ISSUE [None]
  - DRUG EFFECT DECREASED [None]
  - UNEVALUABLE EVENT [None]
